FAERS Safety Report 23769814 (Version 1)
Quarter: 2024Q2

REPORT INFORMATION
  Report Type: Spontaneous
  Country: US (occurrence: None)
  Receive Date: 20240421
  Receipt Date: 20240421
  Transmission Date: 20240716
  Serious: Yes (Other)
  Sender: FDA-Public Use
  Company Number: None

PATIENT
  Sex: Male

DRUGS (2)
  1. ABILIFY [Suspect]
     Active Substance: ARIPIPRAZOLE
     Indication: Depression
  2. ABILIFY [Suspect]
     Active Substance: ARIPIPRAZOLE
     Indication: Dementia Alzheimer^s type

REACTIONS (4)
  - Amnesia [None]
  - Asthenia [None]
  - Cognitive disorder [None]
  - Emotional disorder [None]
